FAERS Safety Report 6335080-X (Version None)
Quarter: 2009Q3

REPORT INFORMATION
  Report Type: 
  Country: None (occurrence: None)
  Receive Date: 20090831
  Receipt Date: 20090821
  Transmission Date: 20100115
  Serious: Yes (Hospitalization)
  Sender: FDA-Public Use
  Company Number: B0589171A

PATIENT
  Sex: Female
  Weight: 53 kg

DRUGS (4)
  1. LAPATINIB [Suspect]
     Indication: BREAST CANCER
     Dosage: 1500MG PER DAY
     Route: 048
     Dates: start: 20090717
  2. PACLITAXEL [Suspect]
     Indication: BREAST CANCER
     Dosage: 80MGM2 WEEKLY
     Route: 042
     Dates: start: 20090717
  3. CREON [Concomitant]
     Indication: PROPHYLAXIS
     Dosage: 300MG THREE TIMES PER DAY
     Route: 048
     Dates: start: 20090726
  4. BIFIDOBACTERIUM [Concomitant]
     Indication: PROPHYLAXIS
     Dosage: 5U TWICE PER DAY
     Route: 048
     Dates: start: 20090724

REACTIONS (4)
  - ANAEMIA [None]
  - NEUTROPENIA [None]
  - PYREXIA [None]
  - RESPIRATORY DISORDER [None]
